FAERS Safety Report 16825875 (Version 1)
Quarter: 2019Q3

REPORT INFORMATION
  Report Type: Report from Study
  Country: US (occurrence: US)
  Receive Date: 20190919
  Receipt Date: 20190919
  Transmission Date: 20191005
  Serious: Yes (Other)
  Sender: FDA-Public Use
  Company Number: US-ROCHE-2403807

PATIENT
  Age: 54 Year
  Sex: Male
  Weight: 96.7 kg

DRUGS (2)
  1. OCREVUS [Suspect]
     Active Substance: OCRELIZUMAB
     Indication: RELAPSING-REMITTING MULTIPLE SCLEROSIS
     Dosage: SECOND SPLIT DOSE: 04/JAN/2019
     Route: 042
     Dates: start: 20181218, end: 20190104
  2. OCREVUS [Suspect]
     Active Substance: OCRELIZUMAB
     Route: 042
     Dates: start: 20190501

REACTIONS (4)
  - Spinal cord injury [Unknown]
  - Muscular weakness [Not Recovered/Not Resolved]
  - Vitamin B12 deficiency [Unknown]
  - Cardiovascular disorder [Not Recovered/Not Resolved]

NARRATIVE: CASE EVENT DATE: 201901
